APPROVED DRUG PRODUCT: CLINDAMYCIN PHOSPHATE
Active Ingredient: CLINDAMYCIN PHOSPHATE
Strength: EQ 1% BASE
Dosage Form/Route: SOLUTION;TOPICAL
Application: A064108 | Product #001
Applicant: NOVAST LABORATORIES LTD
Approved: Sep 27, 1996 | RLD: No | RS: No | Type: DISCN